FAERS Safety Report 14252957 (Version 2)
Quarter: 2018Q1

REPORT INFORMATION
  Report Type: Report from Study
  Country: None (occurrence: IT)
  Receive Date: 20171205
  Receipt Date: 20180105
  Transmission Date: 20180508
  Serious: Yes (Hospitalization)
  Sender: FDA-Public Use
  Company Number: IT-ABBVIE-17K-083-2183482-00

PATIENT
  Sex: Female

DRUGS (1)
  1. DUODOPA [Suspect]
     Active Substance: CARBIDOPA\LEVODOPA
     Indication: PARKINSON^S DISEASE
     Dosage: MD 4,5+3??CR 2,4??ED 2,3
     Route: 050
     Dates: start: 20120711, end: 201712

REACTIONS (5)
  - Weight decreased [Unknown]
  - Parkinson^s disease [Unknown]
  - Pneumonia [Recovered/Resolved]
  - Cognitive disorder [Unknown]
  - Intestinal obstruction [Recovered/Resolved]

NARRATIVE: CASE EVENT DATE: 2017
